FAERS Safety Report 5197713-3 (Version None)
Quarter: 2006Q4

REPORT INFORMATION
  Report Type: 
  Country: None (occurrence: None)
  Receive Date: 20061228
  Receipt Date: 20061212
  Transmission Date: 20070319
  Serious: Yes (Hospitalization)
  Sender: FDA-Public Use
  Company Number: TCI2006A04783

PATIENT
  Age: 65 Year
  Sex: Male

DRUGS (3)
  1. ACTOS [Suspect]
     Indication: DIABETES MELLITUS
     Dosage: SEE IMAGE, PER ORAL
     Route: 048
     Dates: start: 20050601, end: 20061015
  2. LIPITOR [Suspect]
     Dosage: 10 MG (10 MG, 1 IN 1 D), PER ORAL
     Route: 048
     Dates: start: 20060201, end: 20061015
  3. AMARYL [Concomitant]

REACTIONS (6)
  - BLOOD CREATINE PHOSPHOKINASE INCREASED [None]
  - INFECTIVE SPONDYLITIS [None]
  - MELAENA [None]
  - NASOPHARYNGITIS [None]
  - POLLAKIURIA [None]
  - PYREXIA [None]
